FAERS Safety Report 8704586 (Version 2)
Quarter: 2012Q4

REPORT INFORMATION
  Report Type: 
  Country: NZ (occurrence: NZ)
  Receive Date: 20120803
  Receipt Date: 20121211
  Transmission Date: 20130627
  Serious: Yes (Other)
  Sender: FDA-Public Use
  Company Number: PHHY2012NZ064606

PATIENT
  Age: 43 Year
  Sex: Male
  Weight: 75 kg

DRUGS (10)
  1. CLOZARIL [Suspect]
     Indication: SCHIZOPHRENIA
     Route: 048
     Dates: start: 20021022
  2. CLOZARIL [Suspect]
     Dosage: 287.5 mg
     Route: 048
     Dates: start: 201103
  3. CLOZARIL [Suspect]
     Dosage: 162.5 mg
     Dates: start: 201203
  4. AMISULPRIDE [Concomitant]
     Route: 048
     Dates: start: 201104
  5. AMISULPRIDE [Concomitant]
     Dosage: 300 mg, UNK
     Dates: start: 20120403
  6. LITHIUM [Concomitant]
     Indication: AFFECTIVE DISORDER
     Route: 048
     Dates: start: 201010
  7. LITHIUM [Concomitant]
     Dosage: 750 mg, UNK
     Route: 048
     Dates: start: 2012
  8. LAMOTRIGINE [Concomitant]
     Indication: AFFECTIVE DISORDER
     Route: 048
     Dates: start: 2009
  9. LAMOTRIGINE [Concomitant]
     Dosage: 300 mg, UNK
     Route: 048
     Dates: start: 2012
  10. THYROXINE [Concomitant]
     Indication: HYPOTHYROIDISM
     Route: 048

REACTIONS (9)
  - Renal failure chronic [Unknown]
  - Renal impairment [Unknown]
  - Blood creatinine increased [Not Recovered/Not Resolved]
  - Glomerular filtration rate decreased [Not Recovered/Not Resolved]
  - Glucose tolerance impaired [Unknown]
  - Mean platelet volume increased [Not Recovered/Not Resolved]
  - Dyslipidaemia [Unknown]
  - Eosinophil count decreased [Recovered/Resolved]
  - Platelet count decreased [Recovering/Resolving]
